FAERS Safety Report 4491150-2 (Version None)
Quarter: 2004Q3

REPORT INFORMATION
  Report Type: 
  Country: None (occurrence: None)
  Receive Date: 20040927
  Receipt Date: 20040730
  Transmission Date: 20050211
  Serious: No
  Sender: FDA-Public Use
  Company Number: USA040874179

PATIENT
  Age: 47 Year
  Sex: Female
  Weight: 67 kg

DRUGS (8)
  1. STRATTERA [Suspect]
     Indication: ATTENTION DEFICIT/HYPERACTIVITY DISORDER
     Dosage: 40 MG/1 DAY
     Dates: start: 20040726
  2. LEXAPRO [Concomitant]
  3. EFFEXOR [Concomitant]
  4. BUSPAR [Concomitant]
  5. GABATRIL (TIAGABINE HYDROCHLORIDE) [Concomitant]
  6. LISINOPRIL [Concomitant]
  7. HYDROCHLOROTHIAZIDE [Concomitant]
  8. PRILOSEC [Concomitant]

REACTIONS (2)
  - HEADACHE [None]
  - MUSCLE CRAMP [None]
